FAERS Safety Report 23035152 (Version 3)
Quarter: 2024Q4

REPORT INFORMATION
  Report Type: Spontaneous
  Country: US (occurrence: US)
  Receive Date: 20231005
  Receipt Date: 20241210
  Transmission Date: 20250115
  Serious: No
  Sender: SANOFI AVENTIS
  Company Number: US-SA-SAC20230929001139

PATIENT
  Age: 52 Year
  Sex: Male

DRUGS (19)
  1. DUPIXENT [Suspect]
     Active Substance: DUPILUMAB
     Indication: Dermatitis atopic
     Dosage: 600 MG, 1X
     Route: 058
     Dates: start: 20230909, end: 20230909
  2. DUPIXENT [Suspect]
     Active Substance: DUPILUMAB
     Dosage: 300 MG, QOW
     Route: 058
     Dates: start: 202309
  3. ALBUTEROL [Concomitant]
     Active Substance: ALBUTEROL
     Dosage: UNK
  4. EYLEA [Concomitant]
     Active Substance: AFLIBERCEPT
     Dosage: UNK
  5. FLUTICASONE [Concomitant]
     Active Substance: FLUTICASONE
  6. GLIMEPIRIDE [Concomitant]
     Active Substance: GLIMEPIRIDE
     Dosage: UNK
  7. JANUVIA [Concomitant]
     Active Substance: SITAGLIPTIN PHOSPHATE
  8. LISINOPRIL [Concomitant]
     Active Substance: LISINOPRIL
  9. LOVASTATIN [Concomitant]
     Active Substance: LOVASTATIN
  10. METFORMIN [Concomitant]
     Active Substance: METFORMIN HYDROCHLORIDE
  11. PREDNISONE [Concomitant]
     Active Substance: PREDNISONE
     Dosage: UNK
  12. QVAR [Concomitant]
     Active Substance: BECLOMETHASONE DIPROPIONATE
  13. TACROLIMUS [Concomitant]
     Active Substance: TACROLIMUS
  14. TRIAMCINOLONE [Concomitant]
     Active Substance: TRIAMCINOLONE
     Dosage: UNK
  15. ALBUTEROL SULFATE [Concomitant]
     Active Substance: ALBUTEROL SULFATE
  16. FLUOCINONIDE [Concomitant]
     Active Substance: FLUOCINONIDE
     Dosage: UNK
  17. MONTELUKAST [Concomitant]
     Active Substance: MONTELUKAST
  18. QVAR REDIHALER [Concomitant]
     Active Substance: BECLOMETHASONE DIPROPIONATE
     Dosage: UNK
  19. HYDROCORTISONE [Concomitant]
     Active Substance: HYDROCORTISONE
     Dosage: UNK

REACTIONS (5)
  - Rash [Unknown]
  - Discomfort [Unknown]
  - Sleep disorder [Recovered/Resolved]
  - Condition aggravated [Unknown]
  - Drug ineffective [Unknown]

NARRATIVE: CASE EVENT DATE: 20230901
